FAERS Safety Report 20431226 (Version 1)
Quarter: 2022Q1

REPORT INFORMATION
  Report Type: Report from Study
  Country: US (occurrence: US)
  Receive Date: 20220204
  Receipt Date: 20220204
  Transmission Date: 20220423
  Serious: Yes (Life-Threatening, Hospitalization, Other)
  Sender: FDA-Public Use
  Company Number: None

PATIENT

DRUGS (18)
  1. ONCASPAR [Suspect]
     Active Substance: PEGASPARGASE
     Indication: Acute lymphocytic leukaemia
     Dosage: 4275 IU, ONE DOSE
     Route: 042
     Dates: start: 20190405, end: 20190405
  2. ONCASPAR [Suspect]
     Active Substance: PEGASPARGASE
     Dosage: 4222.5 IU, ON D4
     Route: 042
     Dates: start: 20190810
  3. ONCASPAR [Suspect]
     Active Substance: PEGASPARGASE
     Dosage: 4125 IU, ON D4 DELAYED INTENSIFICATION PHASE
     Route: 042
     Dates: start: 20191003, end: 20191003
  4. RUXOLITINIB [Suspect]
     Active Substance: RUXOLITINIB
     Indication: Acute lymphocytic leukaemia
     Dosage: 85 MG, BID
     Route: 048
     Dates: start: 20190322, end: 20190404
  5. RUXOLITINIB [Suspect]
     Active Substance: RUXOLITINIB
     Dosage: 85 MG BID, FROM D1 TO D14 AND FROM D29 TO D42
     Route: 048
     Dates: start: 20190806, end: 20190910
  6. RUXOLITINIB [Suspect]
     Active Substance: RUXOLITINIB
     Dosage: 85 MG BID, FROM D1 TO D14 AND FROM D29 TO D42 DELAYED INTENSIFICATION PHASE
     Route: 048
     Dates: start: 20190918
  7. CYTARABINE [Suspect]
     Active Substance: CYTARABINE
     Indication: Acute lymphocytic leukaemia
     Dosage: 128.5 MG, UNK
     Route: 042
     Dates: start: 20190322, end: 20190401
  8. CYTARABINE [Suspect]
     Active Substance: CYTARABINE
     Dosage: 127 MG DAILY X 4 DOSES, TWICE DELAYED INTENSIFICATION PHASE
     Route: 042
     Dates: start: 20190918
  9. METHOTREXATE [Suspect]
     Active Substance: METHOTREXATE
     Indication: Acute lymphocytic leukaemia
     Dosage: 15 MG, UNK
     Route: 037
     Dates: start: 20190325, end: 20190411
  10. METHOTREXATE [Suspect]
     Active Substance: METHOTREXATE
     Dosage: 15 MG, ON D1, D29
     Route: 037
     Dates: start: 20190806
  11. METHOTREXATE [Suspect]
     Active Substance: METHOTREXATE
     Dosage: 15 MG , WEEKLY DELAYED INTENSIFICATION PHASE
     Route: 037
     Dates: start: 20190918
  12. VINCRISTINE SULFATE [Suspect]
     Active Substance: VINCRISTINE SULFATE
     Indication: Acute lymphocytic leukaemia
     Dosage: 2 MG, UNK
     Route: 042
     Dates: start: 20190404, end: 20190411
  13. VINCRISTINE SULFATE [Suspect]
     Active Substance: VINCRISTINE SULFATE
     Dosage: 2 MG, ON D1, D8, D15, D43, D50
     Route: 042
     Dates: start: 20190806
  14. VINCRISTINE SULFATE [Suspect]
     Active Substance: VINCRISTINE SULFATE
     Dosage: 2 MG, WEEKLY ON DELAYED INTESIFICATION PHASE
     Route: 042
     Dates: start: 20190918
  15. DOXORUBICIN [Suspect]
     Active Substance: DOXORUBICIN
     Indication: Acute lymphocytic leukaemia
     Dosage: 42.3 MG, ON D1, D8, D15
     Route: 042
     Dates: start: 20190806
  16. DEXAMETHASONE [Suspect]
     Active Substance: DEXAMETHASONE
     Indication: Acute lymphocytic leukaemia
     Dosage: 8.5MG BID, FROM D1 TO D7 AND FROM D15 TO D21
     Route: 048
     Dates: start: 20190806
  17. CYCLOPHOSPHAMIDE [Suspect]
     Active Substance: CYCLOPHOSPHAMIDE
     Indication: Acute lymphocytic leukaemia
     Dosage: 1692 MG ONCE DELAYED INTENSIFICATION PHASE
     Route: 042
     Dates: start: 20190918
  18. THIOGUANINE [Suspect]
     Active Substance: THIOGUANINE
     Indication: Acute lymphocytic leukaemia
     Dosage: 100 MG, QD DELAYED INTESIFICATION PHASE
     Route: 048
     Dates: start: 20190918

REACTIONS (7)
  - Septic shock [Unknown]
  - Sepsis [Recovered/Resolved]
  - Posterior reversible encephalopathy syndrome [Recovering/Resolving]
  - Varicella zoster virus infection [Recovering/Resolving]
  - Neutropenia [Recovering/Resolving]
  - Pyrexia [Recovered/Resolved]
  - Lymphopenia [Unknown]

NARRATIVE: CASE EVENT DATE: 20190414
